FAERS Safety Report 5412314-7 (Version None)
Quarter: 2007Q3

REPORT INFORMATION
  Report Type: 
  Country: None (occurrence: None)
  Receive Date: 20070813
  Receipt Date: 20070807
  Transmission Date: 20080115
  Serious: Yes (Congenital Anomaly, Other)
  Sender: FDA-Public Use
  Company Number: US-GENENTECH-244126

PATIENT
  Sex: Female
  Weight: 18.141 kg

DRUGS (3)
  1. NUTROPIN AQ [Suspect]
     Indication: BODY HEIGHT BELOW NORMAL
     Dosage: 1.3 MG, QD
     Route: 058
     Dates: start: 20050516
  2. DEXTROAMPHETAMINE SULFATE [Concomitant]
     Indication: ATTENTION DEFICIT/HYPERACTIVITY DISORDER
     Dosage: 0.5 MG, UNK
     Dates: start: 20050101
  3. CLONIDINE HCL [Concomitant]
     Indication: ATTENTION DEFICIT/HYPERACTIVITY DISORDER
     Dosage: 0.2 MG, UNK
     Dates: start: 20050101

REACTIONS (1)
  - DE LANGE'S SYNDROME [None]
